FAERS Safety Report 6538028-8 (Version None)
Quarter: 2010Q1

REPORT INFORMATION
  Report Type: 
  Country: None (occurrence: None)
  Receive Date: 20100111
  Receipt Date: 20091229
  Transmission Date: 20100710
  Serious: Yes (Life-Threatening)
  Sender: FDA-Public Use
  Company Number: UA-1171675

PATIENT
  Age: 38 Year
  Sex: Male

DRUGS (1)
  1. ALCAINE [Suspect]
     Indication: FOREIGN BODY IN EYE
     Dosage: 1 GTT ONCE OPHTHALMIC
     Route: 047
     Dates: start: 20090831

REACTIONS (6)
  - ASTHENIA [None]
  - BLOOD PRESSURE DECREASED [None]
  - HAEMODYNAMIC INSTABILITY [None]
  - HYPERHIDROSIS [None]
  - LOSS OF CONSCIOUSNESS [None]
  - TREMOR [None]
